FAERS Safety Report 12850560 (Version 5)
Quarter: 2019Q1

REPORT INFORMATION
  Report Type: Spontaneous
  Country: US (occurrence: US)
  Receive Date: 20161014
  Receipt Date: 20190125
  Transmission Date: 20190417
  Serious: Yes (Hospitalization, Other)
  Sender: FDA-Public Use
  Company Number: US-TEVA-702384USA

PATIENT
  Sex: Female

DRUGS (17)
  1. VENLAFAXINE CAP [Concomitant]
     Dosage: DOSE STRENGTH: 37.6
     Route: 065
     Dates: start: 20190110
  2. NORVASC TAB [Concomitant]
     Route: 065
     Dates: start: 20140416
  3. VASOFLEX TAB [Concomitant]
     Route: 065
     Dates: start: 20180729
  4. NADOLOL TAB [Concomitant]
     Route: 065
     Dates: start: 20181023
  5. AMLODIPINE TAB [Concomitant]
     Route: 065
     Dates: start: 20181023
  6. ALBUTEROL NEB [Concomitant]
     Route: 065
     Dates: start: 20170707
  7. AMLODIPINE TAB [Concomitant]
     Route: 065
     Dates: start: 20190117
  8. LANSOPRAZOLE CAP [Concomitant]
     Route: 065
     Dates: start: 20181023
  9. MULTIVITAMIN  CAP [Concomitant]
     Route: 065
     Dates: start: 20140416
  10. MECLIZINE [Concomitant]
     Active Substance: MECLIZINE HYDROCHLORIDE
  11. EFFEXOR XR [Concomitant]
     Active Substance: VENLAFAXINE HYDROCHLORIDE
     Route: 065
     Dates: start: 20160404
  12. COPAXONE [Suspect]
     Active Substance: GLATIRAMER ACETATE
     Indication: MULTIPLE SCLEROSIS
     Dosage: MONDAY WEDNESDAY AND FRIDAY
     Route: 058
     Dates: start: 20140423
  13. AMLODIPINE TAB [Concomitant]
     Route: 065
     Dates: start: 20170103
  14. VITAMIN D CAP [Concomitant]
     Dosage: DOSE STRENGTH: 5000UNT
     Route: 065
     Dates: start: 20180710
  15. AZITHROMYCIN ANHYDROUS. [Concomitant]
     Active Substance: AZITHROMYCIN ANHYDROUS
  16. TIZANIDINE TAB [Concomitant]
     Route: 065
     Dates: start: 20190110
  17. BACLOFEN TAB [Concomitant]
     Route: 065
     Dates: start: 20180307

REACTIONS (4)
  - Multiple sclerosis relapse [Unknown]
  - Injection site erythema [Unknown]
  - Fatigue [Not Recovered/Not Resolved]
  - Malaise [Not Recovered/Not Resolved]

NARRATIVE: CASE EVENT DATE: 2016
